FAERS Safety Report 14838707 (Version 3)
Quarter: 2018Q2

REPORT INFORMATION
  Report Type: Spontaneous
  Country: CO (occurrence: CO)
  Receive Date: 20180502
  Receipt Date: 20180605
  Transmission Date: 20180711
  Serious: Yes (Hospitalization)
  Sender: FDA-Public Use
  Company Number: CO-PFIZER INC-2018078312

PATIENT
  Age: 58 Year
  Sex: Female

DRUGS (1)
  1. XELJANZ [Suspect]
     Active Substance: TOFACITINIB CITRATE
     Indication: RHEUMATOID ARTHRITIS
     Dosage: 5 MG, 2X/DAY
     Route: 048
     Dates: start: 20180203, end: 20180417

REACTIONS (8)
  - Lymphadenopathy [Recovered/Resolved]
  - Oral infection [Recovered/Resolved]
  - Pharyngitis [Recovered/Resolved]
  - Decreased appetite [Recovered/Resolved]
  - Hand deformity [Recovered/Resolved]
  - Pain in extremity [Recovered/Resolved]
  - Salivary gland disorder [Recovered/Resolved]
  - Decreased immune responsiveness [Recovered/Resolved]

NARRATIVE: CASE EVENT DATE: 20180416
